FAERS Safety Report 9028067 (Version 1)
Quarter: 2013Q1

REPORT INFORMATION
  Report Type: Spontaneous
  Country: US (occurrence: None)
  Receive Date: 20130114
  Receipt Date: 20130114
  Transmission Date: 20140127
  Serious: Yes (Disabling)
  Sender: FDA-Public Use
  Company Number: None

PATIENT
  Age: 7 Year
  Sex: Male

DRUGS (1)
  1. GENERIC TRILEPTAL [Suspect]
     Indication: EPILEPSY
     Dosage: 300 MG II BID
     Dates: start: 2002, end: 2003

REACTIONS (2)
  - Lethargy [None]
  - Confusional state [None]
